FAERS Safety Report 16883234 (Version 2)
Quarter: 2019Q4

REPORT INFORMATION
  Report Type: Spontaneous
  Country: US (occurrence: US)
  Receive Date: 20191004
  Receipt Date: 20191219
  Transmission Date: 20200122
  Serious: No
  Sender: FDA-Public Use
  Company Number: US-SA-2019SA271795

PATIENT
  Age: 63 Year
  Sex: Female

DRUGS (1)
  1. PRALUENT [Suspect]
     Active Substance: ALIROCUMAB
     Indication: BLOOD CHOLESTEROL INCREASED
     Dosage: 150 MG
     Route: 058
     Dates: start: 201909

REACTIONS (6)
  - Nasal discomfort [Unknown]
  - Product dose omission [Unknown]
  - Myalgia [Unknown]
  - Nausea [Unknown]
  - Back pain [Unknown]
  - Condition aggravated [Unknown]

NARRATIVE: CASE EVENT DATE: 2019
